FAERS Safety Report 13313570 (Version 1)
Quarter: 2017Q1

REPORT INFORMATION
  Report Type: Spontaneous
  Country: US (occurrence: US)
  Receive Date: 20170309
  Receipt Date: 20170309
  Transmission Date: 20170428
  Serious: No
  Sender: FDA-Public Use
  Company Number: US-ALK ABELLO INC-1064076

PATIENT
  Sex: Female

DRUGS (26)
  1. ROUGH (REDROOT) PIGWEED [Suspect]
     Active Substance: AMARANTHUS RETROFLEXUS POLLEN
     Route: 058
  2. POLLENS - TREES, COTTONWOOD, COMMON POPULUS DELTOIDES [Suspect]
     Active Substance: POPULUS DELTOIDES POLLEN
     Route: 058
  3. AMERICAN ELM [Suspect]
     Active Substance: ULMUS AMERICANA POLLEN
     Route: 058
  4. JOHNSON GRASS POLLEN [Suspect]
     Active Substance: SORGHUM HALEPENSE POLLEN
     Route: 058
  5. SHEEP SORREL POLLEN [Suspect]
     Active Substance: RUMEX ACETOSELLA POLLEN
     Route: 058
  6. SHORT RAGWEED POLLEN [Suspect]
     Active Substance: AMBROSIA ARTEMISIIFOLIA POLLEN
     Route: 058
  7. LAMBS QUARTERS POLLEN [Suspect]
     Active Substance: CHENOPODIUM ALBUM POLLEN
     Route: 058
  8. ASH MIXTURE [Suspect]
     Active Substance: FRAXINUS AMERICANA POLLEN\FRAXINUS PENNSYLVANICA POLLEN
     Route: 058
  9. WHITE PINE POLLEN [Suspect]
     Active Substance: PINUS STROBUS POLLEN
     Route: 058
  10. STANDARDIZED BERMUDA GRASS [Suspect]
     Active Substance: CYNODON DACTYLON POLLEN
     Route: 058
  11. MIXED FEATHERS [Suspect]
     Active Substance: ANAS PLATYRHYNCHOS FEATHER\ANSER ANSER FEATHER\GALLUS GALLUS FEATHER
     Route: 058
  12. CAT HAIR, STANDARDIZED [Suspect]
     Active Substance: FELIS CATUS HAIR
     Route: 058
  13. OAK MIXTURE [Suspect]
     Active Substance: QUERCUS ALBA POLLEN\QUERCUS MACROCARPA POLLEN\QUERCUS MUEHLENBERGII POLLEN\QUERCUS PALUSTRIS POLLEN\QUERCUS RUBRA POLLEN\QUERCUS STELLATA POLLEN\QUERCUS VELUTINA POLLEN\QUERCUS VIRGINIANA POLLEN
     Route: 058
  14. DOG EPITHELIUM [Suspect]
     Active Substance: CANIS LUPUS FAMILIARIS SKIN
     Route: 058
  15. INSECTS (WHOLE BODY) COCKROACH, AMERICAN PERIPLANETA AMERICANA [Suspect]
     Active Substance: PERIPLANETA AMERICANA
     Route: 058
  16. STANDARDIZED TIMOTHY GRASS POLLEN [Suspect]
     Active Substance: PHLEUM PRATENSE POLLEN
     Route: 058
  17. STERILE DILUENT FOR ALLERGENIC EXTRACT NOS [Suspect]
     Active Substance: ALBUMIN HUMAN OR GLYCERIN OR PHENOL
     Route: 058
  18. ASPERGILLUS FUMIGATUS. [Suspect]
     Active Substance: ASPERGILLUS FUMIGATUS
     Route: 058
  19. BOX ELDER [Suspect]
     Active Substance: ACER NEGUNDO POLLEN
     Route: 058
  20. MIXTURE OF STANDARDIZED MITES [Suspect]
     Active Substance: DERMATOPHAGOIDES FARINAE\DERMATOPHAGOIDES PTERONYSSINUS
     Route: 058
  21. MUCOR [Suspect]
     Active Substance: HOMEOPATHICS
     Route: 058
  22. STEMPHYLIUM [Suspect]
     Active Substance: PLEOSPORA TARDA
     Route: 058
  23. PECAN POLLEN [Suspect]
     Active Substance: CARYA ILLINOINENSIS POLLEN
     Route: 058
  24. ENGLISH PLANTAIN POLLEN [Suspect]
     Active Substance: PLANTAGO LANCEOLATA POLLEN
     Route: 058
  25. BIRCH [Suspect]
     Active Substance: BETULA NIGRA POLLEN
     Route: 058
  26. HICKORY POLLEN MIXTURE [Suspect]
     Active Substance: CARYA CORDIFORMIS POLLEN\CARYA GLABRA POLLEN\CARYA OVATA POLLEN\CARYA TOMENTOSA POLLEN
     Route: 058

REACTIONS (2)
  - Injection site discolouration [None]
  - Injection site pain [None]
